FAERS Safety Report 18898639 (Version 1)
Quarter: 2021Q1

REPORT INFORMATION
  Report Type: Spontaneous
  Country: FI (occurrence: FI)
  Receive Date: 20210216
  Receipt Date: 20210216
  Transmission Date: 20210420
  Serious: Yes (Other)
  Sender: FDA-Public Use
  Company Number: FI-BAYER-2021-062051

PATIENT
  Sex: Female

DRUGS (1)
  1. MIRENA [Suspect]
     Active Substance: LEVONORGESTREL
     Indication: MENORRHAGIA
     Dosage: 20 ?G PER DAY CONTINUOUSLY
     Route: 015

REACTIONS (7)
  - Presyncope [None]
  - Post procedural discomfort [None]
  - Post procedural hypotension [None]
  - Pelvic pain [None]
  - Genital haemorrhage [Not Recovered/Not Resolved]
  - Procedural pain [Recovered/Resolved]
  - Uterine pain [Recovered/Resolved]
